FAERS Safety Report 7573629-X (Version None)
Quarter: 2011Q2

REPORT INFORMATION
  Report Type: 
  Country: None (occurrence: None)
  Receive Date: 20110627
  Receipt Date: 20110616
  Transmission Date: 20111010
  Serious: Yes (Other)
  Sender: FDA-Public Use
  Company Number: CN-SANOFI-AVENTIS-2011SA037980

PATIENT
  Age: 57 Year
  Sex: Male
  Weight: 65 kg

DRUGS (3)
  1. LANTUS [Suspect]
     Indication: DIABETES MELLITUS
     Route: 058
     Dates: start: 20110501
  2. NOVORAPID [Concomitant]
     Indication: DIABETES MELLITUS
     Dosage: 14 IN THE MORNING; 12 AT NOON; 12 IN THE EVENING
     Route: 058
     Dates: start: 20101101
  3. LANTUS [Suspect]
     Route: 058
     Dates: start: 20110101, end: 20110501

REACTIONS (3)
  - WEIGHT DECREASED [None]
  - HYPOGLYCAEMIA [None]
  - DIABETES MELLITUS INADEQUATE CONTROL [None]
